FAERS Safety Report 5935061-1 (Version None)
Quarter: 2008Q4

REPORT INFORMATION
  Report Type: 
  Country: None (occurrence: None)
  Receive Date: 20081030
  Receipt Date: 20081023
  Transmission Date: 20090506
  Serious: Yes (Other)
  Sender: FDA-Public Use
  Company Number: US-BAYER-200836649NA

PATIENT
  Age: 41 Year
  Sex: Female
  Weight: 82 kg

DRUGS (1)
  1. YAZ [Suspect]
     Indication: DYSMENORRHOEA
     Route: 048
     Dates: start: 20080101, end: 20081016

REACTIONS (5)
  - ALTERED VISUAL DEPTH PERCEPTION [None]
  - EMBOLIC STROKE [None]
  - HYPOAESTHESIA [None]
  - MIGRAINE [None]
  - SPEECH DISORDER [None]
